FAERS Safety Report 6428039-5 (Version None)
Quarter: 2009Q4

REPORT INFORMATION
  Report Type: 
  Country: None (occurrence: None)
  Receive Date: 20091105
  Receipt Date: 20091026
  Transmission Date: 20100525
  Serious: Yes (Hospitalization)
  Sender: FDA-Public Use
  Company Number: CH-KINGPHARMUSA00001-K200901359

PATIENT
  Age: 75 Year
  Sex: Female

DRUGS (11)
  1. FLECTOR [Suspect]
     Indication: PAIN
     Dosage: 1 PATCH, QD
     Route: 061
     Dates: end: 20090915
  2. MARCUMAR [Suspect]
     Indication: EMBOLISM VENOUS
     Dosage: UNK, QD
     Route: 048
  3. MARCUMAR [Suspect]
     Indication: THROMBOSIS
  4. CO-APROVEL [Concomitant]
     Dosage: 1 DF, UNK
     Route: 048
  5. BELOC ZOK [Concomitant]
     Dosage: 1 DF, UNK
     Route: 048
  6. CALCIMAGON [Concomitant]
     Dosage: 2 DF, UNK
     Route: 048
  7. STILNOX [Concomitant]
     Dosage: 1 DF, UNK
     Route: 048
  8. MYDOCALM [Concomitant]
     Dosage: 2 DF, UNK
  9. ZOLOFT [Concomitant]
     Dosage: 100 MG, UNK
     Route: 048
  10. PANTOZOL [Concomitant]
     Dosage: 40 MG, UNK
     Route: 048
  11. FLUIMUCIL [Concomitant]
     Dosage: 600 MG, UNK
     Route: 048

REACTIONS (8)
  - ANAEMIA [None]
  - GASTROINTESTINAL HAEMORRHAGE [None]
  - HAEMATEMESIS [None]
  - HYPOTENSION [None]
  - INTERNATIONAL NORMALISED RATIO INCREASED [None]
  - MALLORY-WEISS SYNDROME [None]
  - MELAENA [None]
  - REFLUX OESOPHAGITIS [None]
